FAERS Safety Report 10854498 (Version 1)
Quarter: 2015Q1

REPORT INFORMATION
  Report Type: Spontaneous
  Country: JP (occurrence: JP)
  Receive Date: 20150223
  Receipt Date: 20150223
  Transmission Date: 20150721
  Serious: Yes (Other)
  Sender: FDA-Public Use
  Company Number: JP-TEVA-542823ISR

PATIENT
  Age: 22 Year
  Sex: Female

DRUGS (1)
  1. PREDNISOLONE. [Suspect]
     Active Substance: PREDNISOLONE
     Indication: SYSTEMIC LUPUS ERYTHEMATOSUS
     Dosage: 0.87 MG/KG/DAY (ADMINISTRATION)
     Route: 065

REACTIONS (3)
  - Affective disorder [Recovered/Resolved]
  - Mania [Recovered/Resolved]
  - Major depression [Recovered/Resolved]
